FAERS Safety Report 6936715-0 (Version None)
Quarter: 2010Q3

REPORT INFORMATION
  Report Type: 
  Country: None (occurrence: None)
  Receive Date: 20100823
  Receipt Date: 20100813
  Transmission Date: 20110219
  Serious: Yes (Hospitalization, Other)
  Sender: FDA-Public Use
  Company Number: US-ABBOTT-10P-163-0663819-00

PATIENT
  Sex: Female

DRUGS (8)
  1. LUPRON DEPOT [Suspect]
     Indication: ENDOMETRIOSIS
     Route: 050
     Dates: start: 19920601, end: 19930101
  2. BIRTH CONTROL PILLS [Concomitant]
     Indication: ENDOMETRIOSIS
     Dates: start: 19820101
  3. BIRTH CONTROL PILLS [Concomitant]
     Dates: start: 19880101
  4. BIRTH CONTROL PILLS [Concomitant]
     Dosage: INCREASED DOSE EVERY 2 MONTHS
     Dates: start: 19940101
  5. DEPO-PROVERA [Concomitant]
     Indication: ENDOMETRIOSIS
     Dates: start: 19940101
  6. DEPO-PROVERA [Concomitant]
  7. DEPO-PROVERA [Concomitant]
     Dates: end: 19960101
  8. DEPO-PROVERA [Concomitant]
     Route: 050
     Dates: start: 19980101, end: 19980101

REACTIONS (35)
  - ADENOMYOSIS [None]
  - ADHESION [None]
  - ALOPECIA [None]
  - ANGER [None]
  - APPENDICECTOMY [None]
  - BLOOD PRESSURE INCREASED [None]
  - COLONIC OBSTRUCTION [None]
  - CRYING [None]
  - CYST [None]
  - DECREASED INTEREST [None]
  - DEPRESSED MOOD [None]
  - DEPRESSION [None]
  - DYSMENORRHOEA [None]
  - FEELING COLD [None]
  - FRUSTRATION [None]
  - HOT FLUSH [None]
  - INTESTINAL MASS [None]
  - INTESTINAL OBSTRUCTION [None]
  - IRRITABILITY [None]
  - KIDNEY FIBROSIS [None]
  - LIBIDO DECREASED [None]
  - MIGRAINE [None]
  - MOOD SWINGS [None]
  - NEOPLASM [None]
  - OVARIAN CANCER [None]
  - OVARIAN CYST RUPTURED [None]
  - PAIN [None]
  - POST PROCEDURAL COMPLICATION [None]
  - POST-TRAUMATIC STRESS DISORDER [None]
  - PSYCHIATRIC SYMPTOM [None]
  - PYREXIA [None]
  - RECTAL HAEMORRHAGE [None]
  - UTERINE CANCER [None]
  - VOMITING PROJECTILE [None]
  - WEIGHT INCREASED [None]
